FAERS Safety Report 14562447 (Version 2)
Quarter: 2018Q1

REPORT INFORMATION
  Report Type: Spontaneous
  Country: PT (occurrence: PT)
  Receive Date: 20180222
  Receipt Date: 20180313
  Transmission Date: 20180509
  Serious: Yes (Hospitalization)
  Sender: FDA-Public Use
  Company Number: PT-HORIZON-PRE-0064-2018

PATIENT
  Age: 61 Year
  Sex: Male

DRUGS (2)
  1. MESALAZINE [Concomitant]
     Active Substance: MESALAMINE
     Dosage: 1 G PER DAY RECTAL; 3 G PER DAY ORAL
  2. PREDNISONE. [Suspect]
     Active Substance: PREDNISONE
     Indication: COLITIS ULCERATIVE
     Dosage: 5 MG PER WEEK
     Route: 048

REACTIONS (2)
  - Pseudomembranous colitis [Recovered/Resolved with Sequelae]
  - Clostridium difficile infection [Recovered/Resolved with Sequelae]
